FAERS Safety Report 15434946 (Version 1)
Quarter: 2018Q3

REPORT INFORMATION
  Report Type: Spontaneous
  Country: US (occurrence: US)
  Receive Date: 20180924
  Receipt Date: 20180924
  Transmission Date: 20181010
  Serious: No
  Sender: FDA-Public Use
  Company Number: None

PATIENT
  Age: 35 Year
  Sex: Female
  Weight: 47.25 kg

DRUGS (3)
  1. SYNTHROID [Concomitant]
     Active Substance: LEVOTHYROXINE SODIUM
  2. B2 [Concomitant]
  3. AIMOVIG [Suspect]
     Active Substance: ERENUMAB-AOOE
     Indication: MIGRAINE
     Dosage: ?          QUANTITY:2 INJECTION(S);OTHER FREQUENCY:ONCE A MONTH;?
     Route: 058
     Dates: start: 20180908, end: 20180908

REACTIONS (11)
  - Therapy non-responder [None]
  - Myalgia [None]
  - Migraine [None]
  - Back pain [None]
  - Muscle spasms [None]
  - Fatigue [None]
  - Diarrhoea [None]
  - Constipation [None]
  - Vision blurred [None]
  - Nausea [None]
  - Memory impairment [None]

NARRATIVE: CASE EVENT DATE: 20180915
